FAERS Safety Report 25605380 (Version 1)
Quarter: 2025Q3

REPORT INFORMATION
  Report Type: Spontaneous
  Country: US (occurrence: US)
  Receive Date: 20250725
  Receipt Date: 20250725
  Transmission Date: 20251020
  Serious: No
  Sender: BOEHRINGER INGELHEIM
  Company Number: US-Komodo Health-a23aa0000095z5hAAA

PATIENT
  Age: 75 Year
  Sex: Male

DRUGS (1)
  1. JARDIANCE [Suspect]
     Active Substance: EMPAGLIFLOZIN
     Indication: Type 2 diabetes mellitus

REACTIONS (3)
  - Nephrolithiasis [Unknown]
  - Condition aggravated [Unknown]
  - Crystal urine present [Unknown]

NARRATIVE: CASE EVENT DATE: 20250701
